FAERS Safety Report 19581361 (Version 2)
Quarter: 2021Q4

REPORT INFORMATION
  Report Type: Spontaneous
  Country: FR (occurrence: FR)
  Receive Date: 20210719
  Receipt Date: 20211005
  Transmission Date: 20220303
  Serious: Yes (Hospitalization)
  Sender: FDA-Public Use
  Company Number: FR-CANTON LABORATORIES, LLC-2113999

PATIENT
  Age: 37 Year
  Sex: Female

DRUGS (3)
  1. NAPROSYN [Suspect]
     Active Substance: NAPROXEN
     Indication: Influenza like illness
     Route: 048
     Dates: start: 20210620, end: 20210620
  2. PROZAC [Suspect]
     Active Substance: FLUOXETINE HYDROCHLORIDE
     Route: 048
     Dates: start: 202102, end: 20210628
  3. SPIKEVAX [Suspect]
     Active Substance: ELASOMERAN
     Route: 030
     Dates: start: 20210610, end: 20210610

REACTIONS (1)
  - Spontaneous haematoma [Not Recovered/Not Resolved]

NARRATIVE: CASE EVENT DATE: 20210627
